FAERS Safety Report 5146134-8 (Version None)
Quarter: 2006Q4

REPORT INFORMATION
  Report Type: 
  Country: None (occurrence: None)
  Receive Date: 20061108
  Receipt Date: 20060313
  Transmission Date: 20070319
  Serious: Yes (Other)
  Sender: FDA-Public Use
  Company Number: CA-ROCHE-440190

PATIENT
  Age: 41 Year
  Sex: Male

DRUGS (1)
  1. ACCUTANE [Suspect]
     Indication: ACNE
     Route: 048
     Dates: start: 20051215, end: 20060304

REACTIONS (2)
  - ANXIETY [None]
  - OBSESSIVE-COMPULSIVE DISORDER [None]
